FAERS Safety Report 8604444-3 (Version None)
Quarter: 2012Q3

REPORT INFORMATION
  Report Type: 
  Country: None (occurrence: None)
  Receive Date: 20120820
  Receipt Date: 20120809
  Transmission Date: 20120928
  Serious: Yes (Hospitalization)
  Sender: FDA-Public Use
  Company Number: FR-JNJFOC-20120805410

PATIENT
  Sex: Male

DRUGS (3)
  1. RISPERDAL [Suspect]
     Indication: AUTISM
     Route: 048
  2. TERCIAN [Suspect]
     Indication: AUTISM
     Route: 048
  3. TERCIAN [Suspect]
     Dosage: BETWEEN 75 TO 200 DROPS PER DAY
     Route: 048

REACTIONS (3)
  - THROMBOCYTOPENIA [None]
  - OFF LABEL USE [None]
  - LEUKOPENIA [None]
